FAERS Safety Report 6427234-9 (Version None)
Quarter: 2009Q4

REPORT INFORMATION
  Report Type: 
  Country: None (occurrence: None)
  Receive Date: 20091104
  Receipt Date: 20091028
  Transmission Date: 20100525
  Serious: Yes (Hospitalization)
  Sender: FDA-Public Use
  Company Number: A0814239A

PATIENT
  Sex: Male
  Weight: 60 kg

DRUGS (3)
  1. LAMICTAL [Suspect]
     Route: 048
     Dates: start: 20070101
  2. DEPAKENE [Concomitant]
     Dosage: 1250MG PER DAY
  3. CLOBAZAM [Concomitant]
     Dosage: 40MG PER DAY

REACTIONS (9)
  - CONJUNCTIVITIS [None]
  - CONVULSION [None]
  - HYPOTHYROIDISM [None]
  - INFLUENZA [None]
  - INSOMNIA [None]
  - INTENTIONAL SELF-INJURY [None]
  - MUSCLE SPASMS [None]
  - PARKINSONISM [None]
  - PNEUMONIA INFLUENZAL [None]
